FAERS Safety Report 10416594 (Version 1)
Quarter: 2014Q3

REPORT INFORMATION
  Report Type: Spontaneous
  Country: US (occurrence: US)
  Receive Date: 20140828
  Receipt Date: 20140828
  Transmission Date: 20150326
  Serious: Yes (Other)
  Sender: FDA-Public Use
  Company Number: PHHY2014US106698

PATIENT
  Age: 55 Year
  Sex: Female

DRUGS (6)
  1. CLOZAPINE. [Suspect]
     Active Substance: CLOZAPINE
  2. HALOPERIDOL. [Suspect]
     Active Substance: HALOPERIDOL
     Dosage: 20 MG/DAY
     Route: 048
  3. QUETIAPINE [Suspect]
     Active Substance: QUETIAPINE
     Dosage: 800 MG/DAY
  4. FLUVOXAMINE [Suspect]
     Active Substance: FLUVOXAMINE
  5. RISPERIDONE. [Suspect]
     Active Substance: RISPERIDONE
     Dosage: 8 MG/DAY
  6. CLOMIPRAMINE [Suspect]
     Active Substance: CLOMIPRAMINE

REACTIONS (3)
  - Condition aggravated [Recovering/Resolving]
  - Obsessive-compulsive disorder [Recovering/Resolving]
  - Drug ineffective [Unknown]
